FAERS Safety Report 7917665-X (Version None)
Quarter: 2011Q4

REPORT INFORMATION
  Report Type: 
  Country: None (occurrence: None)
  Receive Date: 20111116
  Receipt Date: 20111111
  Transmission Date: 20120403
  Serious: Yes (Death)
  Sender: FDA-Public Use
  Company Number: US-SANOFI-AVENTIS-2011SA074799

PATIENT
  Age: 62 Year
  Sex: Female

DRUGS (2)
  1. TAXOTERE [Suspect]
     Route: 041
     Dates: start: 20110201, end: 20110201
  2. TAXOTERE [Suspect]
     Route: 041
     Dates: start: 20110101, end: 20110101

REACTIONS (1)
  - DEATH [None]
